FAERS Safety Report 25845835 (Version 1)
Quarter: 2025Q3

REPORT INFORMATION
  Report Type: Spontaneous
  Country: EU (occurrence: EU)
  Receive Date: 20250925
  Receipt Date: 20250925
  Transmission Date: 20251020
  Serious: Yes (Other)
  Sender: RANBAXY
  Company Number: EU-AFSSAPS-PV2025000443

PATIENT
  Age: 57 Year
  Sex: Male

DRUGS (2)
  1. ROSUVASTATIN [Suspect]
     Active Substance: ROSUVASTATIN
     Indication: Hypertension
     Route: 048
     Dates: start: 202502
  2. AMLODIPINE\INDAPAMIDE [Suspect]
     Active Substance: AMLODIPINE\INDAPAMIDE
     Indication: Hypertension
     Dosage: 1 DOSAGE FORM, QD
     Route: 048
     Dates: start: 20250214

REACTIONS (4)
  - Organic erectile dysfunction [Not Recovered/Not Resolved]
  - Affective disorder [Not Recovered/Not Resolved]
  - Alopecia [Not Recovered/Not Resolved]
  - Back pain [Not Recovered/Not Resolved]

NARRATIVE: CASE EVENT DATE: 20250201
